FAERS Safety Report 8342209-0 (Version None)
Quarter: 2012Q2

REPORT INFORMATION
  Report Type: 
  Country: None (occurrence: None)
  Receive Date: 20120507
  Receipt Date: 20120501
  Transmission Date: 20120825
  Serious: Yes (Other)
  Sender: FDA-Public Use
  Company Number: US-AMGEN-USASP2012027496

PATIENT
  Age: 66 Year
  Sex: Female

DRUGS (7)
  1. HYDROCHLOROTHIAZIDE [Concomitant]
  2. ATIVAN [Concomitant]
  3. LORTAB [Concomitant]
  4. PROLIA [Suspect]
     Indication: OSTEOPOROSIS POSTMENOPAUSAL
     Dates: start: 20120328
  5. VASOTEC [Concomitant]
  6. BYSTOLIC [Concomitant]
  7. OMEPRAZOLE [Concomitant]

REACTIONS (1)
  - URTICARIA [None]
